FAERS Safety Report 9444269 (Version 1)
Quarter: 2013Q3

REPORT INFORMATION
  Report Type: Report from Study
  Country: CA (occurrence: CA)
  Receive Date: 20130807
  Receipt Date: 20130807
  Transmission Date: 20140515
  Serious: Yes (Death)
  Sender: FDA-Public Use
  Company Number: PHHY2012CA089996

PATIENT
  Sex: Female

DRUGS (2)
  1. ZOMETA [Suspect]
     Indication: BREAST CANCER
     Dosage: 4 MG, EVERY 4 WEEKS
     Route: 042
     Dates: start: 20120530, end: 20130806
  2. OXYCONTIN [Concomitant]
     Indication: BONE PAIN

REACTIONS (7)
  - Death [Fatal]
  - Sluggishness [Unknown]
  - Nasopharyngitis [Unknown]
  - Thinking abnormal [Unknown]
  - Malaise [Unknown]
  - Pain in jaw [Unknown]
  - Nausea [Unknown]
